FAERS Safety Report 24553694 (Version 1)
Quarter: 2024Q4

REPORT INFORMATION
  Report Type: Report from Study
  Country: US (occurrence: US)
  Receive Date: 20241028
  Receipt Date: 20241028
  Transmission Date: 20250114
  Serious: No
  Sender: ROCHE
  Company Number: US-ROCHE-3564465

PATIENT
  Sex: Male
  Weight: 62.8 kg

DRUGS (4)
  1. NUTROPIN AQ [Suspect]
     Active Substance: SOMATROPIN
     Indication: Short stature
     Route: 058
     Dates: start: 20191211, end: 20240304
  2. NUTROPIN AQ [Suspect]
     Active Substance: SOMATROPIN
     Dosage: NUSPIN 10MG/2ML (5MG/ML), (1.9 MG TOTAL) UNDER THE SKIN
     Route: 058
     Dates: start: 20231211, end: 20240304
  3. ANASTROZOLE [Concomitant]
     Active Substance: ANASTROZOLE
     Dates: start: 20220928, end: 20240304
  4. FEMARA [Concomitant]
     Active Substance: LETROZOLE
     Dosage: FREQUENCY TEXT:DAILY
     Route: 048
     Dates: start: 20220518

REACTIONS (2)
  - Spinal deformity [Unknown]
  - Off label use [Unknown]
